FAERS Safety Report 4648971-2 (Version None)
Quarter: 2005Q2

REPORT INFORMATION
  Report Type: 
  Country: None (occurrence: None)
  Receive Date: 20050427
  Receipt Date: 20050411
  Transmission Date: 20051028
  Serious: Yes (Other)
  Sender: FDA-Public Use
  Company Number: DSA_26324_2005

PATIENT
  Age: 69 Year
  Sex: Female

DRUGS (8)
  1. CARDIZEM [Suspect]
     Indication: ATRIAL FIBRILLATION
     Dosage: 120 MG Q DAY PO
     Route: 048
     Dates: start: 20050101
  2. CARDIZEM [Suspect]
     Indication: ATRIAL FIBRILLATION
     Dosage: 30 MG TID PO
     Route: 048
  3. TIKOSYN [Suspect]
     Indication: ATRIAL FIBRILLATION
     Dosage: 250 MG BID PO
     Route: 048
     Dates: start: 20050113
  4. ATORVASTATIN [Concomitant]
  5. WARFARIN SODIUM [Concomitant]
  6. MAGNESIUM [Concomitant]
  7. ESOMEPRAZOLE [Concomitant]
  8. UNSPECIFIED THYROID MEDICATION [Concomitant]

REACTIONS (5)
  - ATRIAL FIBRILLATION [None]
  - BLOOD POTASSIUM DECREASED [None]
  - BRADYCARDIA [None]
  - EXTRASYSTOLES [None]
  - HYPERTHYROIDISM [None]
